FAERS Safety Report 14835026 (Version 2)
Quarter: 2018Q2

REPORT INFORMATION
  Report Type: Report from Study
  Country: US (occurrence: US)
  Receive Date: 20180501
  Receipt Date: 20180514
  Transmission Date: 20180711
  Serious: No
  Sender: FDA-Public Use
  Company Number: PHEH2018US016786

PATIENT
  Sex: Female

DRUGS (1)
  1. GILENYA [Suspect]
     Active Substance: FINGOLIMOD HYDROCHLORIDE
     Indication: MULTIPLE SCLEROSIS
     Dosage: 0.5 MG, QD
     Route: 048
     Dates: start: 20170802

REACTIONS (5)
  - Nausea [Recovering/Resolving]
  - Tremor [Recovering/Resolving]
  - Weight increased [Not Recovered/Not Resolved]
  - Panic disorder [Recovering/Resolving]
  - Withdrawal syndrome [Recovering/Resolving]
